FAERS Safety Report 7470356-4 (Version None)
Quarter: 2011Q2

REPORT INFORMATION
  Report Type: 
  Country: None (occurrence: None)
  Receive Date: 20110510
  Receipt Date: 20110502
  Transmission Date: 20111010
  Serious: Yes (Hospitalization)
  Sender: FDA-Public Use
  Company Number: US-GILEAD-2011-0038395

PATIENT
  Sex: Female
  Weight: 62.198 kg

DRUGS (9)
  1. ASPIRIN [Concomitant]
  2. LETAIRIS [Suspect]
     Indication: PRODUCT USED FOR UNKNOWN INDICATION
     Route: 048
     Dates: start: 20090723
  3. PRILOSEC [Concomitant]
  4. PROVENTIL [Concomitant]
  5. LISINOPRIL [Concomitant]
  6. VENTAVIS [Concomitant]
  7. ADVAIR DISKUS 100/50 [Concomitant]
  8. PREDNISONE [Concomitant]
  9. OXYGEN [Concomitant]

REACTIONS (4)
  - DYSPNOEA [None]
  - ASTHMA [None]
  - PAIN [None]
  - PYREXIA [None]
